FAERS Safety Report 25477187 (Version 1)
Quarter: 2025Q2

REPORT INFORMATION
  Report Type: Spontaneous
  Country: DE (occurrence: DE)
  Receive Date: 20250625
  Receipt Date: 20250625
  Transmission Date: 20250717
  Serious: No
  Sender: ALKEM
  Company Number: DE-ALKEM LABORATORIES LIMITED-DE-ALKEM-2024-21978

PATIENT
  Age: 72 Year
  Sex: Male

DRUGS (3)
  1. CINACALCET [Suspect]
     Active Substance: CINACALCET
     Indication: Blood parathyroid hormone increased
     Dosage: 60 MILLIGRAM, QD (EVERY 1 DAY)
     Route: 065
  2. ETELCALCETIDE [Suspect]
     Active Substance: ETELCALCETIDE
     Indication: Blood parathyroid hormone increased
     Dosage: 15 MILLIGRAM, ONCE WEEKLY
     Route: 065
  3. ETELCALCETIDE [Suspect]
     Active Substance: ETELCALCETIDE
     Dosage: 22.5 MILLIGRAM, ONCE WEEKLY
     Route: 065

REACTIONS (2)
  - Blood parathyroid hormone increased [Recovering/Resolving]
  - Therapeutic product effect incomplete [Recovered/Resolved]

NARRATIVE: CASE EVENT DATE: 20170501
